FAERS Safety Report 21143826 (Version 1)
Quarter: 2022Q3

REPORT INFORMATION
  Report Type: Spontaneous
  Country: US (occurrence: None)
  Receive Date: 20220728
  Receipt Date: 20220728
  Transmission Date: 20221026
  Serious: Yes (Other)
  Sender: FDA-Public Use
  Company Number: None

PATIENT
  Age: 72 Year
  Sex: Male
  Weight: 108 kg

DRUGS (1)
  1. CITROMA [Suspect]
     Active Substance: MAGNESIUM CITRATE
     Indication: Colonoscopy
     Dosage: OTHER QUANTITY : 10 OUNCE(S);?FREQUENCY : AT BEDTIME;?
     Route: 048
     Dates: start: 20220719, end: 20220719

REACTIONS (2)
  - Pyrexia [None]
  - Adverse drug reaction [None]

NARRATIVE: CASE EVENT DATE: 20220721
